FAERS Safety Report 13109790 (Version 1)
Quarter: 2017Q1

REPORT INFORMATION
  Report Type: Spontaneous
  Country: US (occurrence: US)
  Receive Date: 20170112
  Receipt Date: 20170112
  Transmission Date: 20170428
  Serious: Yes (Death, Hospitalization)
  Sender: FDA-Public Use
  Company Number: US-ROCHE-1101188

PATIENT
  Age: 58 Year
  Sex: Male

DRUGS (13)
  1. DOPAMINE [Concomitant]
     Active Substance: DOPAMINE\DOPAMINE HYDROCHLORIDE
  2. DOBUTREX [Concomitant]
     Active Substance: DOBUTAMINE HYDROCHLORIDE
  3. ASPIRIN. [Concomitant]
     Active Substance: ASPIRIN
  4. NITROGLYCERIN. [Concomitant]
     Active Substance: NITROGLYCERIN
  5. INSULIN [Concomitant]
     Active Substance: INSULIN NOS
  6. STREPTOKINASE [Concomitant]
     Active Substance: STREPTOKINASE
  7. EPINEPHRINE. [Concomitant]
     Active Substance: EPINEPHRINE
  8. LIDOCAINE. [Concomitant]
     Active Substance: LIDOCAINE
  9. ACTIVASE [Suspect]
     Active Substance: ALTEPLASE
     Indication: ACUTE MYOCARDIAL INFARCTION
     Route: 065
     Dates: start: 19940513
  10. ATROPIN [Concomitant]
     Active Substance: ATROPINE
  11. HEPARIN [Concomitant]
     Active Substance: HEPARIN SODIUM
  12. PROMETHAZINE [Concomitant]
     Active Substance: PROMETHAZINE\PROMETHAZINE HYDROCHLORIDE
  13. A-HYDROCORT [Concomitant]
     Active Substance: HYDROCORTISONE SODIUM SUCCINATE

REACTIONS (4)
  - Cardiogenic shock [Unknown]
  - Pulseless electrical activity [Unknown]
  - Cardiac arrest [Fatal]
  - Atrioventricular block [Unknown]

NARRATIVE: CASE EVENT DATE: 19940516
